FAERS Safety Report 15613673 (Version 1)
Quarter: 2018Q4

REPORT INFORMATION
  Report Type: Spontaneous
  Country: US (occurrence: US)
  Receive Date: 20181109
  Receipt Date: 20181109
  Transmission Date: 20190205
  Serious: Yes (Other)
  Sender: FDA-Public Use
  Company Number: None

PATIENT
  Age: 48 Year
  Sex: Female
  Weight: 47.25 kg

DRUGS (2)
  1. GO LEAN DETOX [Suspect]
     Active Substance: HERBALS
     Indication: PHYTOTHERAPY
     Dosage: ?          QUANTITY:2 CAPSULE(S);?
     Route: 048
     Dates: start: 20180801, end: 20180815
  2. LEVOTHYROXINE. [Concomitant]
     Active Substance: LEVOTHYROXINE

REACTIONS (6)
  - Dehydration [None]
  - Dizziness [None]
  - Diarrhoea [None]
  - Pain [None]
  - Hyperventilation [None]
  - Migraine [None]

NARRATIVE: CASE EVENT DATE: 20180801
